FAERS Safety Report 5063717-4 (Version None)
Quarter: 2006Q3

REPORT INFORMATION
  Report Type: 
  Country: None (occurrence: None)
  Receive Date: 20060724
  Receipt Date: 20060719
  Transmission Date: 20061208
  Serious: Yes (Other)
  Sender: FDA-Public Use
  Company Number: 008088

PATIENT
  Sex: Female

DRUGS (5)
  1. MEDROXYPROGESTERONE ACETATE [Suspect]
     Dosage: ORAL
     Route: 048
     Dates: start: 19910101, end: 20010601
  2. CYCRIN [Suspect]
     Dosage: ORAL
     Route: 048
     Dates: start: 19910101, end: 20010601
  3. PREMARIN [Suspect]
     Dosage: ORAL
     Route: 048
     Dates: start: 19910101, end: 20010601
  4. PREMPRO [Suspect]
     Dosage: ORAL
     Route: 048
     Dates: start: 19910101, end: 20010601
  5. PROVERA [Suspect]
     Dosage: ORAL
     Route: 048
     Dates: start: 19910101, end: 20010601

REACTIONS (1)
  - BREAST CANCER FEMALE [None]
